FAERS Safety Report 16509346 (Version 1)
Quarter: 2019Q2

REPORT INFORMATION
  Report Type: Spontaneous
  Country: US (occurrence: US)
  Receive Date: 20190521
  Receipt Date: 20190521
  Transmission Date: 20190711
  Serious: No
  Sender: FDA-Public Use
  Company Number: None

PATIENT
  Age: 71 Year
  Sex: Female
  Weight: 99.79 kg

DRUGS (1)
  1. FORTEO [Suspect]
     Active Substance: TERIPARATIDE
     Indication: OSTEOPOROSIS
     Dosage: OTHER STRENGTH 600MCG/2.4 ML PEN INJ
     Route: 058
     Dates: start: 201903

REACTIONS (2)
  - Therapy cessation [None]
  - Cellulitis [None]
